FAERS Safety Report 5078008-5 (Version None)
Quarter: 2006Q3

REPORT INFORMATION
  Report Type: 
  Country: None (occurrence: None)
  Receive Date: 20060811
  Receipt Date: 20060731
  Transmission Date: 20061208
  Serious: Yes (Hospitalization)
  Sender: FDA-Public Use
  Company Number: JP-JNJFOC-20060703551

PATIENT
  Sex: Female

DRUGS (7)
  1. RISPERDAL [Suspect]
  2. RISPERDAL [Suspect]
     Indication: DRUG EXPOSURE DURING PREGNANCY
  3. KAYTWO N [Concomitant]
     Indication: PROPHYLAXIS
  4. GLUCOSE [Concomitant]
     Indication: FLUID REPLACEMENT
     Dosage: DOSE =210-240ML/DAY
  5. NOVO HEPARIN [Concomitant]
     Indication: PROPHYLAXIS
  6. ISOTONIC SODIUM CHLORIDE [Concomitant]
     Indication: ELECTROLYTE SUBSTITUTION THERAPY
     Dosage: DOSE=53-62 MG/DAY
  7. SOLITA-T [Concomitant]

REACTIONS (2)
  - HYPERTONIA NEONATAL [None]
  - TRANSIENT TACHYPNOEA OF THE NEWBORN [None]
